FAERS Safety Report 9391491 (Version 2)
Quarter: 2013Q3

REPORT INFORMATION
  Report Type: Report from Study
  Country: IL (occurrence: IL)
  Receive Date: 20130709
  Receipt Date: 20130816
  Transmission Date: 20140515
  Serious: Yes (Other)
  Sender: FDA-Public Use
  Company Number: IL-CELGENEUS-082-21880-13063999

PATIENT
  Age: 77 Year
  Sex: Male
  Weight: 92 kg

DRUGS (23)
  1. REVLIMID [Suspect]
     Indication: PLASMA CELL MYELOMA
     Dosage: 25 MILLIGRAM
     Route: 048
     Dates: start: 20110925, end: 20111015
  2. REVLIMID [Suspect]
     Dosage: 15 MILLIGRAM
     Route: 048
     Dates: start: 20111120, end: 20111210
  3. REVLIMID [Suspect]
     Dosage: 15 MILLIGRAM
     Route: 048
     Dates: start: 20130503, end: 20130523
  4. REVLIMID [Suspect]
     Dosage: DAY 1-21 PER 28 DAY CYCLE
     Route: 048
     Dates: start: 20130531, end: 20130620
  5. DEXAMETHASONE [Suspect]
     Indication: PLASMA CELL MYELOMA
     Route: 065
     Dates: start: 20110925, end: 20111016
  6. DEXAMETHASONE [Suspect]
     Route: 065
     Dates: start: 20130503, end: 20130524
  7. DEXAMETHASONE [Suspect]
     Dosage: DAY 1,8,15,22 PER 28 DAY CYCLE
     Route: 065
     Dates: start: 20130531, end: 20130614
  8. ARANESP [Concomitant]
     Indication: PROPHYLAXIS
     Route: 058
     Dates: start: 20121118
  9. COUMADIN [Concomitant]
     Indication: ANTICOAGULANT THERAPY
     Dosage: 5-7.5 MG
     Route: 048
     Dates: start: 20121030
  10. COUMADIN [Concomitant]
     Indication: ATRIAL FIBRILLATION
     Route: 065
     Dates: start: 20070208
  11. ELTROXIN [Concomitant]
     Indication: HYPOTHYROIDISM
     Dosage: .05 MILLIGRAM
     Route: 048
     Dates: start: 20061124
  12. FOLEX [Concomitant]
     Indication: ANAEMIA
     Dosage: 308MG+400MCG 308MG+400MCG
     Route: 048
     Dates: start: 201207
  13. FUSID [Concomitant]
     Indication: CARDIAC FAILURE CONGESTIVE
     Dosage: 10 MILLIGRAM
     Route: 048
     Dates: start: 201209
  14. LYRICA [Concomitant]
     Indication: NEURALGIA
     Dosage: 150 MILLIGRAM
     Route: 048
     Dates: start: 20120415
  15. LYRICA [Concomitant]
     Dosage: 75 MILLIGRAM
     Route: 048
     Dates: start: 20120415
  16. LOSEC [Concomitant]
     Indication: PROPHYLAXIS
     Dosage: 20 MILLIGRAM
     Route: 048
     Dates: start: 20110919
  17. NOCTURNO [Concomitant]
     Indication: INSOMNIA
     Dosage: 7.5 MILLIGRAM
     Route: 048
     Dates: start: 20090924
  18. NORMITEN [Concomitant]
     Indication: HYPERTENSION
     Dosage: 25 MILLIGRAM
     Route: 048
     Dates: start: 20061124
  19. OSAMO ADALAT [Concomitant]
     Indication: HYPERTENSION
     Dosage: 60 MILLIGRAM
     Route: 048
     Dates: start: 20061214
  20. VASODIP COMBO [Concomitant]
     Indication: CARDIAC FAILURE CONGESTIVE
     Dosage: 10 MILLIGRAM
     Route: 048
     Dates: start: 20121001
  21. XATRAL [Concomitant]
     Indication: NOCTURIA
     Dosage: 10 MILLIGRAM
     Route: 048
     Dates: start: 20060921
  22. ZOVIRAX [Concomitant]
     Indication: PROPHYLAXIS
     Dosage: 400 MILLIGRAM
     Route: 048
     Dates: start: 20111107
  23. MAGNESIUM DIASPORAL [Concomitant]
     Indication: FATIGUE
     Route: 048
     Dates: start: 20130403

REACTIONS (1)
  - Retinal vein occlusion [Not Recovered/Not Resolved]
